FAERS Safety Report 14630366 (Version 1)
Quarter: 2018Q1

REPORT INFORMATION
  Report Type: Spontaneous
  Country: US (occurrence: US)
  Receive Date: 20180313
  Receipt Date: 20180313
  Transmission Date: 20180509
  Serious: No
  Sender: FDA-Public Use
  Company Number: US-ASTRAZENECA-2018SE19361

PATIENT
  Sex: Male

DRUGS (1)
  1. PULMICORT FLEXHALER [Suspect]
     Active Substance: BUDESONIDE
     Route: 055

REACTIONS (7)
  - Influenza [Unknown]
  - Circumstance or information capable of leading to medication error [Recovered/Resolved]
  - Pulmonary congestion [Not Recovered/Not Resolved]
  - Candida infection [Unknown]
  - Product quality issue [Unknown]
  - Cough [Not Recovered/Not Resolved]
  - Intentional product misuse [Not Recovered/Not Resolved]
